FAERS Safety Report 5676436-8 (Version None)
Quarter: 2008Q1

REPORT INFORMATION
  Report Type: 
  Country: None (occurrence: None)
  Receive Date: 20080321
  Receipt Date: 20080310
  Transmission Date: 20080703
  Serious: Yes (Other)
  Sender: FDA-Public Use
  Company Number: KR-GENENTECH-255458

PATIENT
  Sex: Female
  Weight: 64 kg

DRUGS (1)
  1. RANIBIZUMAB [Suspect]
     Indication: MACULAR DEGENERATION
     Dosage: 0.5 MG, UNK
     Route: 031
     Dates: start: 20080123

REACTIONS (2)
  - DISEASE PROGRESSION [None]
  - HYPERTENSION [None]
